FAERS Safety Report 9992833 (Version 5)
Quarter: 2014Q2

REPORT INFORMATION
  Report Type: Spontaneous
  Country: JP (occurrence: JP)
  Receive Date: 20140310
  Receipt Date: 20140430
  Transmission Date: 20141212
  Serious: Yes (Hospitalization, Other)
  Sender: FDA-Public Use
  Company Number: JP-BRISTOL-MYERS SQUIBB COMPANY-20407185

PATIENT
  Age: 55 Year
  Sex: Female
  Weight: 85.9 kg

DRUGS (13)
  1. ELIQUIS [Suspect]
     Indication: ATRIAL FIBRILLATION
     Dosage: DOSE REDUCED TO 2.5 MG/DAY
     Route: 048
     Dates: start: 201306
  2. MAGNESIUM OXIDE [Concomitant]
     Route: 048
  3. ARTIST [Concomitant]
     Route: 048
  4. KALIMATE [Concomitant]
     Dosage: 1DF=3 SACHETS/DAY
     Route: 048
  5. FEBUXOSTAT [Concomitant]
     Route: 048
  6. CONIEL [Concomitant]
     Route: 048
  7. LASIX [Concomitant]
     Route: 048
  8. TAKEPRON [Concomitant]
     Route: 048
  9. SAMSCA [Concomitant]
     Route: 048
  10. LENDORMIN [Concomitant]
     Route: 048
  11. FERROMIA [Concomitant]
     Route: 048
  12. LANTUS [Concomitant]
     Dosage: 1DF=22 UNIT/DAY
  13. NOVORAPID [Concomitant]
     Dosage: 1DF=26 UNIT/DAY

REACTIONS (2)
  - Genital haemorrhage [Recovering/Resolving]
  - Cardiac failure [Recovering/Resolving]
